FAERS Safety Report 6080457-3 (Version None)
Quarter: 2009Q1

REPORT INFORMATION
  Report Type: 
  Country: None (occurrence: None)
  Receive Date: 20090217
  Receipt Date: 20090204
  Transmission Date: 20090719
  Serious: Yes (Other)
  Sender: FDA-Public Use
  Company Number: US-JNJFOC-20090201218

PATIENT
  Sex: Female

DRUGS (10)
  1. REMICADE [Suspect]
     Indication: JUVENILE ARTHRITIS
     Dosage: THIRD DOSE
     Route: 042
  2. REMICADE [Suspect]
     Indication: COLITIS ULCERATIVE
     Route: 042
  3. PREDNISONE [Concomitant]
  4. PREVACID [Concomitant]
  5. FOLIC ACID [Concomitant]
  6. ALLEGRA [Concomitant]
  7. VITAMIN D [Concomitant]
  8. TYLENOL [Concomitant]
     Indication: PREMEDICATION
  9. BENADRYL [Concomitant]
     Indication: PREMEDICATION
  10. COLAZAL [Concomitant]

REACTIONS (7)
  - CHEST DISCOMFORT [None]
  - DRUG INEFFECTIVE [None]
  - DYSPNOEA [None]
  - INFUSION RELATED REACTION [None]
  - OEDEMA PERIPHERAL [None]
  - PAIN [None]
  - SWELLING FACE [None]
